FAERS Safety Report 9293133 (Version 1)
Quarter: 2013Q2

REPORT INFORMATION
  Report Type: Spontaneous
  Country: TW (occurrence: None)
  Receive Date: 20130514
  Receipt Date: 20130514
  Transmission Date: 20140414
  Serious: Yes (Death, Other)
  Sender: FDA-Public Use
  Company Number: VAL_02503_2013

PATIENT
  Sex: Female

DRUGS (1)
  1. CARBAMAZEPINE (CARBAMAZEPINE (CBE)) [Suspect]
     Indication: CARPAL TUNNEL SYNDROME

REACTIONS (4)
  - Toxic epidermal necrolysis [None]
  - Septic shock [None]
  - Multi-organ failure [None]
  - Disseminated intravascular coagulation [None]
